FAERS Safety Report 5356487-3 (Version None)
Quarter: 2007Q2

REPORT INFORMATION
  Report Type: 
  Country: None (occurrence: None)
  Receive Date: 20070530
  Receipt Date: 20070110
  Transmission Date: 20071010
  Serious: Yes (Other)
  Sender: FDA-Public Use
  Company Number: US200609003699

PATIENT
  Age: 51 Year
  Sex: Male
  Weight: 105.2 kg

DRUGS (1)
  1. ZYPREXA [Suspect]
     Indication: ANXIETY
     Dosage: 10 MG, DAILY (1/D)
     Dates: start: 19981201, end: 20050901

REACTIONS (2)
  - CHEST PAIN [None]
  - DIABETES MELLITUS [None]
